FAERS Safety Report 8217485-5 (Version None)
Quarter: 2012Q1

REPORT INFORMATION
  Report Type: 
  Country: None (occurrence: None)
  Receive Date: 20120302
  Receipt Date: 20110411
  Transmission Date: 20120608
  Serious: Yes (Hospitalization)
  Sender: FDA-Public Use
  Company Number: 2011BH005651

PATIENT
  Age: 58 Year
  Sex: Female
  Weight: 101 kg

DRUGS (1)
  1. EXTRANEAL [Suspect]
     Indication: PERITONEAL DIALYSIS
     Dosage: 2 L;EVERY DAY;IP
     Route: 033
     Dates: start: 20101218, end: 20101227

REACTIONS (2)
  - ABDOMINAL PAIN [None]
  - RASH [None]
